FAERS Safety Report 15081246 (Version 1)
Quarter: 2018Q2

REPORT INFORMATION
  Report Type: Spontaneous
  Country: US (occurrence: US)
  Receive Date: 20180628
  Receipt Date: 20180628
  Transmission Date: 20180711
  Serious: No
  Sender: FDA-Public Use
  Company Number: US-ACCORD-063160

PATIENT
  Age: 48 Year
  Sex: Female

DRUGS (1)
  1. CLONAZEPAM ACCORD [Suspect]
     Active Substance: CLONAZEPAM
     Indication: PRODUCT USED FOR UNKNOWN INDICATION
     Dosage: STRENGTH: 1 MG?1 TABLET THREE TIMES DAILY
     Route: 048
     Dates: end: 201707

REACTIONS (2)
  - Tinnitus [Unknown]
  - Hypoacusis [Recovered/Resolved]
